FAERS Safety Report 7178025-5 (Version None)
Quarter: 2010Q4

REPORT INFORMATION
  Report Type: 
  Country: None (occurrence: None)
  Receive Date: 20101220
  Receipt Date: 20101207
  Transmission Date: 20110411
  Serious: Yes (Death)
  Sender: FDA-Public Use
  Company Number: FR-ACTELION-A-CH2010-42462

PATIENT
  Sex: Female

DRUGS (1)
  1. ZAVESCA [Suspect]
     Indication: LIPIDOSIS
     Dosage: 60 MG, TID
     Route: 048
     Dates: start: 20080723, end: 20090627

REACTIONS (2)
  - DISEASE PROGRESSION [None]
  - LIPIDOSIS [None]
